FAERS Safety Report 8927505 (Version 2)
Quarter: 2012Q4

REPORT INFORMATION
  Report Type: 
  Country: GB (occurrence: GB)
  Receive Date: 20121127
  Receipt Date: 20121212
  Transmission Date: 20130627
  Serious: Yes (Hospitalization)
  Sender: FDA-Public Use
  Company Number: GB-WATSON-2012-20195

PATIENT
  Age: 47 Year
  Sex: Female

DRUGS (6)
  1. AMISULPRIDE [Suspect]
     Indication: PRODUCT USED FOR UNKNOWN INDICATION
     Dosage: 800 mg, unknown
     Route: 048
  2. CLOMIPRAMINE HYDROCHLORIDE [Suspect]
     Indication: PRODUCT USED FOR UNKNOWN INDICATION
     Dosage: 200 mg, unknown
     Route: 048
  3. CLONAZEPAM [Suspect]
     Indication: PRODUCT USED FOR UNKNOWN INDICATION
     Dosage: 4 mg, unknown
     Route: 048
  4. CLOZARIL [Suspect]
     Indication: SCHIZOPHRENIA
     Dosage: 350 mg, unknown
     Route: 048
     Dates: start: 20050309
  5. CLOZARIL [Suspect]
     Dosage: 700 mg, unknown
     Route: 048
  6. SCOPOLAMINE HYDROBROMIDE [Suspect]
     Indication: PRODUCT USED FOR UNKNOWN INDICATION
     Dosage: 600 mg, unknown
     Route: 048

REACTIONS (2)
  - Emotional distress [Recovered/Resolved]
  - Incorrect dose administered [Recovered/Resolved]
